FAERS Safety Report 18718571 (Version 1)
Quarter: 2021Q1

REPORT INFORMATION
  Report Type: Spontaneous
  Country: US (occurrence: US)
  Receive Date: 20210108
  Receipt Date: 20210108
  Transmission Date: 20210419
  Serious: Yes (Other)
  Sender: FDA-Public Use
  Company Number: US-HIKMA PHARMACEUTICALS USA INC.-US-H14001-21-53251

PATIENT
  Age: 74 Year
  Sex: Male

DRUGS (1)
  1. DOXYCYCLINE. [Suspect]
     Active Substance: DOXYCYCLINE
     Indication: ARTHRITIS INFECTIVE
     Route: 065

REACTIONS (5)
  - Gastric ulcer [Unknown]
  - Gastrointestinal injury [Unknown]
  - Iron deficiency anaemia [Unknown]
  - Gastrointestinal necrosis [Unknown]
  - Reactive gastropathy [Unknown]
